FAERS Safety Report 7206446-0 (Version None)
Quarter: 2011Q1

REPORT INFORMATION
  Report Type: 
  Country: None (occurrence: None)
  Receive Date: 20110103
  Receipt Date: 20101223
  Transmission Date: 20110831
  Serious: Yes (Death)
  Sender: FDA-Public Use
  Company Number: IN-BRISTOL-MYERS SQUIBB COMPANY-15460710

PATIENT
  Age: 5 Decade
  Sex: Female

DRUGS (2)
  1. ANTIHYPERTENSIVE [Concomitant]
  2. ONGLYZA [Suspect]
     Indication: DIABETES MELLITUS

REACTIONS (1)
  - ANGIOEDEMA [None]
